FAERS Safety Report 14814036 (Version 2)
Quarter: 2018Q4

REPORT INFORMATION
  Report Type: Spontaneous
  Country: FR (occurrence: FR)
  Receive Date: 20180426
  Receipt Date: 20181024
  Transmission Date: 20190204
  Serious: Yes (Other)
  Sender: FDA-Public Use
  Company Number: FR-MERCK KGAA-2046589

PATIENT
  Sex: Female

DRUGS (1)
  1. EUTHYROX [Suspect]
     Active Substance: LEVOTHYROXINE SODIUM
     Indication: PRODUCT USED FOR UNKNOWN INDICATION

REACTIONS (16)
  - Dry mouth [None]
  - Dry eye [None]
  - Anxiety [None]
  - Fatigue [Not Recovered/Not Resolved]
  - Vertigo [None]
  - Disturbance in social behaviour [None]
  - Loss of personal independence in daily activities [None]
  - Psychiatric symptom [None]
  - Fall [None]
  - Arthralgia [None]
  - Disturbance in attention [None]
  - Gastrointestinal disorder [None]
  - Myalgia [None]
  - Feeling abnormal [None]
  - Memory impairment [None]
  - Fibromyalgia [None]
